FAERS Safety Report 4999318-3 (Version None)
Quarter: 2006Q2

REPORT INFORMATION
  Report Type: 
  Country: None (occurrence: None)
  Receive Date: 20060511
  Receipt Date: 20060206
  Transmission Date: 20061013
  Serious: Yes (Death)
  Sender: FDA-Public Use
  Company Number: US-AVENTIS-200611404US

PATIENT
  Sex: Female
  Weight: 75.75 kg

DRUGS (10)
  1. KETEK [Suspect]
     Indication: BRONCHITIS
     Route: 048
     Dates: start: 20060103
  2. EFFEXOR [Concomitant]
  3. SEROQUEL [Concomitant]
  4. PREVACID [Concomitant]
  5. CELEXA [Concomitant]
  6. HALDOL [Concomitant]
  7. DOXYCYCLINE [Concomitant]
     Indication: BRONCHITIS
     Route: 048
     Dates: start: 20051003
  8. KEFLEX [Concomitant]
     Indication: BRONCHITIS
     Dosage: DOSE: UNK
     Dates: start: 20051027
  9. LASIX [Concomitant]
     Indication: OEDEMA
  10. K-DUR 10 [Concomitant]
     Indication: OEDEMA

REACTIONS (3)
  - FALL [None]
  - HAEMORRHAGE [None]
  - RIB FRACTURE [None]
